FAERS Safety Report 12883775 (Version 1)
Quarter: 2016Q4

REPORT INFORMATION
  Report Type: Spontaneous
  Country: FR (occurrence: FR)
  Receive Date: 20161026
  Receipt Date: 20161026
  Transmission Date: 20170207
  Serious: Yes (Life-Threatening)
  Sender: FDA-Public Use
  Company Number: FR-ROCHE-1845911

PATIENT
  Age: 43 Year
  Sex: Female

DRUGS (14)
  1. AMLODIPINE [Concomitant]
     Active Substance: AMLODIPINE BESYLATE
     Dosage: 1-0-0
     Route: 048
  2. PANTOPRAZOLE [Concomitant]
     Active Substance: PANTOPRAZOLE SODIUM
     Dosage: 1-0-0
     Route: 048
  3. CEFIXIME. [Concomitant]
     Active Substance: CEFIXIME
     Route: 065
     Dates: start: 20160902
  4. ADVAGRAF [Concomitant]
     Active Substance: TACROLIMUS
     Dosage: 1-0-1, DOSE ADJUSTMENT DEPENDING ON DRUG ASSAY
     Route: 048
     Dates: start: 20160414
  5. MEDROL [Concomitant]
     Active Substance: METHYLPREDNISOLONE
     Dosage: 1-0-1,THEN DOSE DECREASED TO 1MG DAILY IN MAY-2016
     Route: 048
     Dates: start: 20160414
  6. OROZAMUDOL [Concomitant]
     Active Substance: TRAMADOL
     Route: 048
  7. SPASFON (FRANCE) [Concomitant]
     Active Substance: PHLOROGLUCINOL
     Route: 048
  8. PARACETAMOL [Concomitant]
     Active Substance: ACETAMINOPHEN
     Route: 048
  9. KARDEGIC [Concomitant]
     Active Substance: ASPIRIN LYSINE
     Dosage: 0-1-0
     Route: 048
  10. NOMEGESTROL [Concomitant]
     Active Substance: NOMEGESTROL
     Route: 048
  11. CEFPODOXIME [Concomitant]
     Active Substance: CEFPODOXIME
     Route: 048
  12. LANSOYL [Concomitant]
     Active Substance: MINERAL OIL
     Route: 048
  13. AZITHROMYCINE [Concomitant]
     Active Substance: AZITHROMYCIN DIHYDRATE
     Route: 048
     Dates: start: 20160915
  14. CELLCEPT [Suspect]
     Active Substance: MYCOPHENOLATE MOFETIL\MYCOPHENOLATE MOFETIL HYDROCHLORIDE
     Indication: LIVER TRANSPLANT
     Dosage: 1-0-1
     Route: 048
     Dates: start: 20160414, end: 20161006

REACTIONS (2)
  - Agranulocytosis [Recovered/Resolved]
  - Anaemia [Not Recovered/Not Resolved]

NARRATIVE: CASE EVENT DATE: 20160920
